FAERS Safety Report 7583459-0 (Version None)
Quarter: 2011Q2

REPORT INFORMATION
  Report Type: 
  Country: None (occurrence: None)
  Receive Date: 20110630
  Receipt Date: 20110617
  Transmission Date: 20111010
  Serious: Yes (Other)
  Sender: FDA-Public Use
  Company Number: US-ROCHE-509527

PATIENT
  Sex: Male
  Weight: 79.4 kg

DRUGS (2)
  1. ACCUTANE [Suspect]
     Route: 065
     Dates: start: 19980202, end: 19980524
  2. ERGOTAMINE [Concomitant]
     Indication: HEADACHE

REACTIONS (15)
  - COLITIS [None]
  - FALL [None]
  - RECTAL HAEMORRHAGE [None]
  - HAEMATOCHEZIA [None]
  - GASTROENTERITIS [None]
  - ANXIETY [None]
  - PSEUDOPOLYP [None]
  - COLITIS ULCERATIVE [None]
  - CROHN'S DISEASE [None]
  - LIGAMENT RUPTURE [None]
  - ABDOMINAL PAIN [None]
  - DIARRHOEA [None]
  - ENTERITIS [None]
  - INFLAMMATORY BOWEL DISEASE [None]
  - PERIRECTAL ABSCESS [None]
